FAERS Safety Report 4783078-5 (Version None)
Quarter: 2005Q3

REPORT INFORMATION
  Report Type: 
  Country: None (occurrence: None)
  Receive Date: 20050928
  Receipt Date: 20050928
  Transmission Date: 20060218
  Serious: No
  Sender: FDA-Public Use
  Company Number: None

PATIENT
  Age: 62 Year
  Sex: Male
  Weight: 67.13 kg

DRUGS (1)
  1. ZONEGRAN [Suspect]
     Indication: EPILEPSY
     Dosage: 100 MG DAILY PO
     Route: 048
     Dates: start: 20050325, end: 20050413

REACTIONS (1)
  - STEVENS-JOHNSON SYNDROME [None]
